FAERS Safety Report 6665148-X (Version None)
Quarter: 2010Q2

REPORT INFORMATION
  Report Type: 
  Country: None (occurrence: None)
  Receive Date: 20100402
  Receipt Date: 20100324
  Transmission Date: 20101027
  Serious: Yes (Other)
  Sender: FDA-Public Use
  Company Number: US-JNJFOC-20100307130

PATIENT
  Age: 80 Year
  Sex: Male
  Weight: 95.26 kg

DRUGS (4)
  1. MOTRIN IB [Suspect]
     Route: 048
  2. MOTRIN IB [Suspect]
     Indication: ARTHRITIS
     Route: 048
  3. SIMVASTATIN [Concomitant]
     Indication: BLOOD CHOLESTEROL INCREASED
  4. TYLENOL [Concomitant]
     Indication: PAIN

REACTIONS (2)
  - HAEMATOCHEZIA [None]
  - ULCER [None]
